FAERS Safety Report 7470019-5 (Version None)
Quarter: 2011Q2

REPORT INFORMATION
  Report Type: 
  Country: None (occurrence: None)
  Receive Date: 20110510
  Receipt Date: 20110506
  Transmission Date: 20111010
  Serious: Yes (Hospitalization)
  Sender: FDA-Public Use
  Company Number: BR-ROCHE-775658

PATIENT
  Sex: Female
  Weight: 78 kg

DRUGS (4)
  1. CAPOTEN [Concomitant]
     Indication: HYPERTENSION
     Dates: start: 19960101
  2. CARDIZEM [Concomitant]
     Dates: start: 20070101
  3. CLONAZEPAM [Suspect]
     Indication: LABYRINTHITIS
     Route: 048
     Dates: start: 20060101
  4. ATENOLOL [Concomitant]
     Dates: start: 20070101

REACTIONS (4)
  - DIZZINESS [None]
  - DYSSTASIA [None]
  - MEDICATION ERROR [None]
  - DIVERTICULITIS [None]
